FAERS Safety Report 9749654 (Version 2)
Quarter: 2014Q1

REPORT INFORMATION
  Report Type: Spontaneous
  Country: JP (occurrence: JP)
  Receive Date: 20131212
  Receipt Date: 20140120
  Transmission Date: 20141002
  Serious: Yes (Other)
  Sender: FDA-Public Use
  Company Number: PHHY2013JP144943

PATIENT
  Sex: 0

DRUGS (3)
  1. RASILEZ [Suspect]
     Indication: HYPERTENSION
     Dosage: 150 MG, DAILY
     Route: 048
     Dates: end: 201312
  2. ANGIOTENSIN CONVERTING ENZYME BLOCKERS [Concomitant]
     Dosage: UNK UKN, UNK
  3. CALCIUM CHANNEL BLOCKERS [Concomitant]
     Dosage: UNK UKN, UNK

REACTIONS (1)
  - Type 2 diabetes mellitus [Unknown]
